FAERS Safety Report 4817262-9 (Version None)
Quarter: 2005Q4

REPORT INFORMATION
  Report Type: 
  Country: None (occurrence: None)
  Receive Date: 20051101
  Receipt Date: 20051021
  Transmission Date: 20060501
  Serious: Yes (Hospitalization)
  Sender: FDA-Public Use
  Company Number: US-JNJFOC-20051005252

PATIENT
  Sex: Female
  Weight: 44.45 kg

DRUGS (7)
  1. TOPAMAX [Suspect]
     Indication: MIGRAINE
     Route: 048
  2. TYLENOL W/ CODEINE NO. 3 [Suspect]
     Indication: MIGRAINE
     Route: 048
  3. ABILIFY [Concomitant]
  4. TRILAFON [Concomitant]
  5. ATIVAN [Concomitant]
  6. TRAZODONE HCL [Concomitant]
  7. LEXAPRO [Concomitant]
     Indication: DEPRESSION

REACTIONS (2)
  - DIARRHOEA [None]
  - PSYCHOTIC DISORDER [None]
